FAERS Safety Report 7034378-X (Version None)
Quarter: 2010Q4

REPORT INFORMATION
  Report Type: 
  Country: None (occurrence: None)
  Receive Date: 20101008
  Receipt Date: 20100930
  Transmission Date: 20110411
  Serious: Yes (Hospitalization)
  Sender: FDA-Public Use
  Company Number: US-JNJFOC-20100403056

PATIENT
  Sex: Female
  Weight: 77.11 kg

DRUGS (16)
  1. SANDOZ FENTANYL TRANSDERMAL SYSTEM [Suspect]
     Indication: PAIN
     Route: 062
  2. SANDOZ FENTANYL TRANSDERMAL SYSTEM [Suspect]
     Route: 062
  3. DURAGESIC-100 [Suspect]
     Indication: PAIN
     Route: 062
  4. TOPAMAX [Suspect]
     Indication: ATTENTION DEFICIT/HYPERACTIVITY DISORDER
     Route: 048
  5. DURAGESIC-100 [Suspect]
     Route: 062
  6. LYRICA [Concomitant]
     Indication: FIBROMYALGIA
     Route: 048
  7. DEPAKOTE [Concomitant]
     Indication: MIGRAINE
     Route: 048
  8. PERCOCET [Concomitant]
     Indication: BREAKTHROUGH PAIN
     Route: 048
  9. LEVSIN [Concomitant]
     Indication: IRRITABLE BOWEL SYNDROME
     Route: 048
  10. MIRAPEX [Concomitant]
     Indication: RESTLESS LEGS SYNDROME
     Route: 048
  11. NEXIUM [Concomitant]
     Indication: GASTROOESOPHAGEAL REFLUX DISEASE
     Route: 048
  12. RESTASIS [Concomitant]
     Indication: DRY EYE
     Route: 047
  13. ALBUTEROL [Concomitant]
     Indication: ASTHMA
     Route: 055
  14. SINGULAIR [Concomitant]
     Indication: ASTHMA
     Route: 048
  15. HUMIRA [Concomitant]
     Indication: ARTHRITIS
     Route: 058
  16. SYMBICORT [Concomitant]
     Indication: ASTHMA
     Dosage: DAILY
     Route: 055

REACTIONS (19)
  - ABDOMINAL DISCOMFORT [None]
  - APPLICATION SITE ERYTHEMA [None]
  - APPLICATION SITE IRRITATION [None]
  - APPLICATION SITE PAIN [None]
  - APPLICATION SITE REACTION [None]
  - APPLICATION SITE VESICLES [None]
  - ARTHRALGIA [None]
  - ARTHROPATHY [None]
  - ATTENTION DEFICIT/HYPERACTIVITY DISORDER [None]
  - BACK PAIN [None]
  - BIPOLAR DISORDER [None]
  - DIARRHOEA [None]
  - KIDNEY INFECTION [None]
  - NEPHROLITHIASIS [None]
  - PAIN [None]
  - PRODUCT QUALITY ISSUE [None]
  - THERAPEUTIC RESPONSE DECREASED [None]
  - WITHDRAWAL SYNDROME [None]
  - WRONG TECHNIQUE IN DRUG USAGE PROCESS [None]
